FAERS Safety Report 11117469 (Version 1)
Quarter: 2015Q2

REPORT INFORMATION
  Report Type: Spontaneous
  Country: US (occurrence: US)
  Receive Date: 20150516
  Receipt Date: 20150516
  Transmission Date: 20150821
  Serious: Yes (Other)
  Sender: FDA-Public Use
  Company Number: US-AUROBINDO-AUR-APL-2015-04290

PATIENT
  Age: 47 Year
  Sex: Male

DRUGS (2)
  1. MODAFINIL 100MG [Suspect]
     Active Substance: MODAFINIL
     Indication: AGGRESSION
     Dosage: 200 MG, UNK
     Route: 065
  2. MODAFINIL. [Suspect]
     Active Substance: MODAFINIL
     Indication: SELF INJURIOUS BEHAVIOUR
     Dosage: 100 MG, UNK
     Route: 065

REACTIONS (4)
  - Self injurious behaviour [Recovered/Resolved]
  - Aggression [Recovered/Resolved]
  - Condition aggravated [Recovered/Resolved]
  - Abnormal behaviour [Recovered/Resolved]
